FAERS Safety Report 18974924 (Version 2)
Quarter: 2021Q2

REPORT INFORMATION
  Report Type: Report from Study
  Country: US (occurrence: US)
  Receive Date: 20210305
  Receipt Date: 20210417
  Transmission Date: 20210717
  Serious: No
  Sender: FDA-Public Use
  Company Number: NVSC2021US041605

PATIENT
  Sex: Female

DRUGS (1)
  1. COSENTYX [Suspect]
     Active Substance: SECUKINUMAB
     Indication: PSORIASIS
     Dosage: UNK
     Route: 058

REACTIONS (6)
  - Dizziness [Unknown]
  - Fatigue [Unknown]
  - Psoriasis [Unknown]
  - Product dose omission issue [Unknown]
  - Pain [Unknown]
  - COVID-19 [Unknown]
